FAERS Safety Report 7298307-6 (Version None)
Quarter: 2011Q1

REPORT INFORMATION
  Report Type: 
  Country: None (occurrence: None)
  Receive Date: 20110217
  Receipt Date: 20100407
  Transmission Date: 20110831
  Serious: No
  Sender: FDA-Public Use
  Company Number: US-PFIZER INC-2010044634

PATIENT
  Sex: Female

DRUGS (3)
  1. LUMIGAN [Suspect]
  2. XALATAN [Suspect]
  3. ALPHAGAN [Suspect]

REACTIONS (2)
  - FACIAL PAIN [None]
  - HEADACHE [None]
